FAERS Safety Report 13332669 (Version 1)
Quarter: 2017Q1

REPORT INFORMATION
  Report Type: Report from Study
  Country: US (occurrence: AR)
  Receive Date: 20170313
  Receipt Date: 20170313
  Transmission Date: 20170428
  Serious: Yes (Hospitalization)
  Sender: FDA-Public Use
  Company Number: US-SUNOVION-2017SUN001084

PATIENT
  Age: 65 Year
  Sex: Female

DRUGS (1)
  1. INDACATEROL AND GLYCOPYRROLATE [Suspect]
     Active Substance: GLYCOPYRROLATE\INDACATEROL MALEATE
     Indication: CHRONIC OBSTRUCTIVE PULMONARY DISEASE
     Dosage: 1 DF, QD
     Route: 065
     Dates: start: 2016

REACTIONS (9)
  - Eyelid ptosis [Unknown]
  - Fall [Unknown]
  - Tooth loss [Unknown]
  - Aneurysm [Unknown]
  - Face injury [Unknown]
  - Paraesthesia [Unknown]
  - Memory impairment [Unknown]
  - Procedural pain [Unknown]
  - Visual impairment [Unknown]

NARRATIVE: CASE EVENT DATE: 20160718
